FAERS Safety Report 6345590 (Version 2)
Quarter: 2020Q3

REPORT INFORMATION
  Report Type: Spontaneous
  Country: JP (occurrence: None)
  Receive Date: 20070614
  Receipt Date: 20070712
  Transmission Date: 20201105
  Serious: Yes (Hospitalization)
  Sender: FDA-Public Use
  Company Number: DSA_30036_2007

PATIENT
  Age: 79 Year
  Sex: Female

DRUGS (8)
  1. HICEE [Suspect]
     Active Substance: ASCORBIC ACID\VITAMINS
     Indication: BLADDER CANCER
     Dosage: (DF ORAL)
     Route: 048
  2. NORVASC [Suspect]
     Active Substance: AMLODIPINE BESYLATE
     Indication: HYPERTENSION
     Dosage: (2.5 MG QD ORAL)
     Route: 048
  3. ISOSORBIDE DINITRATE. [Suspect]
     Active Substance: ISOSORBIDE DINITRATE
     Indication: ANGINA PECTORIS
     Dosage: (40 MG QD ORAL)
     Route: 048
  4. HERBESSER [Suspect]
     Active Substance: DILTIAZEM HYDROCHLORIDE
     Indication: HYPERTENSION
     Dosage: (100 MG QD ORAL)
     Route: 048
     Dates: start: 200701
  5. METHYLCOBALAMIN. [Suspect]
     Active Substance: METHYLCOBALAMIN
     Indication: ANGINA PECTORIS
     Dosage: (1 MG QD DF ORAL)
     Route: 048
  6. MAGNESIUM OXIDE. [Suspect]
     Active Substance: MAGNESIUM OXIDE
     Indication: CONSTIPATION
     Dosage: (2.5 MG QD)
  7. UFT [Suspect]
     Active Substance: TEGAFUR\URACIL
     Indication: BLADDER CANCER
     Dosage: (300 MG QD ORAL)
     Route: 048
  8. UNSPECIFIED INGREDIENT [Suspect]
     Active Substance: UNSPECIFIED INGREDIENT
     Indication: BLADDER CANCER
     Dosage: (1.5 MG QD ORAL)
     Route: 048

REACTIONS (5)
  - Chest discomfort [None]
  - Sinus node dysfunction [None]
  - Nodal rhythm [None]
  - Vomiting [None]
  - Dysphoria [None]

NARRATIVE: CASE EVENT DATE: 20070329
